FAERS Safety Report 15997178 (Version 1)
Quarter: 2019Q1

REPORT INFORMATION
  Report Type: Spontaneous
  Country: US (occurrence: US)
  Receive Date: 20190222
  Receipt Date: 20190222
  Transmission Date: 20190418
  Serious: Yes (Other)
  Sender: FDA-Public Use
  Company Number: US-ASSERTIO THERAPEUTICS, INC.-US-2019DEP000090

PATIENT
  Sex: Female
  Weight: 49.89 kg

DRUGS (2)
  1. NALTREXONE [Concomitant]
     Active Substance: NALTREXONE
     Indication: PAIN
     Dosage: 3 MG IN MORNING AND 4.5 MG AT NIGHT
     Dates: start: 2016
  2. GRALISE [Suspect]
     Active Substance: GABAPENTIN
     Indication: PAIN
     Dosage: 300 MG IN MORNING, 1200 MG AT NIGHT
     Route: 048
     Dates: start: 2012

REACTIONS (7)
  - Inappropriate schedule of product administration [Unknown]
  - Drug ineffective for unapproved indication [Unknown]
  - Rash generalised [Recovered/Resolved]
  - Thyroid hormones decreased [Unknown]
  - Drug titration error [Unknown]
  - Blood pressure abnormal [Unknown]
  - Abdominal discomfort [Unknown]

NARRATIVE: CASE EVENT DATE: 2012
